FAERS Safety Report 19058812 (Version 1)
Quarter: 2021Q1

REPORT INFORMATION
  Report Type: Report from Study
  Country: BR (occurrence: BR)
  Receive Date: 20210325
  Receipt Date: 20210325
  Transmission Date: 20210420
  Serious: Yes (Other)
  Sender: FDA-Public Use
  Company Number: BR-JNJFOC-20210337162

PATIENT
  Age: 61 Year
  Sex: Female
  Weight: 68 kg

DRUGS (9)
  1. SERTRALINE [Concomitant]
     Active Substance: SERTRALINE HYDROCHLORIDE
  2. CALCIUM [Concomitant]
     Active Substance: CALCIUM
  3. SIMVASTATIN. [Concomitant]
     Active Substance: SIMVASTATIN
  4. HYDROCHLOROTHIAZIDE. [Concomitant]
     Active Substance: HYDROCHLOROTHIAZIDE
  5. SIMPONI [Suspect]
     Active Substance: GOLIMUMAB
     Indication: RHEUMATOID ARTHRITIS
     Route: 058
     Dates: start: 20191105, end: 2019
  6. ACETYLSALICYLIC ACID [Suspect]
     Active Substance: ASPIRIN
     Indication: PRODUCT USED FOR UNKNOWN INDICATION
     Route: 065
  7. REVANGE [ISOSORBIDE MONONITRATE] [Concomitant]
     Active Substance: ISOSORBIDE MONONITRATE
  8. ATENOLOL. [Concomitant]
     Active Substance: ATENOLOL
  9. ZOLPIDEM [Concomitant]
     Active Substance: ZOLPIDEM TARTRATE

REACTIONS (5)
  - Renal cancer [Unknown]
  - Product use issue [Unknown]
  - Procedural haemorrhage [Unknown]
  - Pain [Unknown]
  - Off label use [Unknown]

NARRATIVE: CASE EVENT DATE: 20191105
